FAERS Safety Report 6828577-7 (Version None)
Quarter: 2010Q3

REPORT INFORMATION
  Report Type: 
  Country: None (occurrence: None)
  Receive Date: 20100709
  Receipt Date: 20070213
  Transmission Date: 20110219
  Serious: No
  Sender: FDA-Public Use
  Company Number: US-PFIZER INC-2007011805

PATIENT
  Sex: Female
  Weight: 56.7 kg

DRUGS (8)
  1. CHANTIX [Suspect]
     Indication: SMOKING CESSATION THERAPY
     Dates: start: 20070210
  2. SPIRIVA [Concomitant]
     Indication: ASTHMA
  3. ALBUTEROL [Concomitant]
     Indication: ASTHMA
  4. PREVACID [Concomitant]
     Indication: GASTROOESOPHAGEAL REFLUX DISEASE
  5. LOTREL [Concomitant]
     Indication: HYPERTENSION
  6. ZOCOR [Concomitant]
     Indication: BLOOD CHOLESTEROL INCREASED
  7. VITAMINS [Concomitant]
  8. AMBIEN [Concomitant]

REACTIONS (5)
  - DIARRHOEA [None]
  - HUNGER [None]
  - MUSCULAR WEAKNESS [None]
  - NAUSEA [None]
  - NIGHTMARE [None]
